FAERS Safety Report 4756808-6 (Version None)
Quarter: 2005Q3

REPORT INFORMATION
  Report Type: 
  Country: None (occurrence: None)
  Receive Date: 20050830
  Receipt Date: 20050801
  Transmission Date: 20060218
  Serious: Yes (Other)
  Sender: FDA-Public Use
  Company Number: PHEH2005US08527

PATIENT
  Sex: Female

DRUGS (2)
  1. FAMVIR [Suspect]
     Dosage: 500 MG, UNK
     Route: 048
  2. DIOVAN [Concomitant]
     Indication: HYPERTENSION

REACTIONS (7)
  - CYST [None]
  - HAEMANGIOMA [None]
  - MASS [None]
  - NEOPLASM SKIN [None]
  - RASH [None]
  - SKIN ULCER [None]
  - UNEVALUABLE EVENT [None]
